FAERS Safety Report 4307387-9 (Version None)
Quarter: 2004Q1

REPORT INFORMATION
  Report Type: 
  Country: None (occurrence: None)
  Receive Date: 20040226
  Receipt Date: 20040213
  Transmission Date: 20041129
  Serious: Yes (Other)
  Sender: FDA-Public Use
  Company Number: 2004011640

PATIENT
  Age: 38 Year
  Sex: Male

DRUGS (3)
  1. GABAPENTIN [Suspect]
     Indication: CONVULSION
     Dates: start: 19970201, end: 19970801
  2. PHENOBARBITAL TAB [Concomitant]
  3. CARBAMAZEPINE [Concomitant]

REACTIONS (2)
  - COMA [None]
  - HYPOTHERMIA [None]
